FAERS Safety Report 17013988 (Version 2)
Quarter: 2020Q1

REPORT INFORMATION
  Report Type: Spontaneous
  Country: US (occurrence: US)
  Receive Date: 20191111
  Receipt Date: 20200213
  Transmission Date: 20200409
  Serious: Yes (Hospitalization, Other)
  Sender: FDA-Public Use
  Company Number: US-DRREDDYS-USA/USA/19/0115806

PATIENT
  Age: 46 Year
  Sex: Female

DRUGS (3)
  1. DIVALPROEX SODIUM EXTENDED RELEASE TABLETS 250 MG [Concomitant]
     Active Substance: DIVALPROEX SODIUM
     Indication: PRODUCT USED FOR UNKNOWN INDICATION
     Dosage: LESS THAN 30 TABLETS
     Route: 048
  2. LURASIDONE [Concomitant]
     Active Substance: LURASIDONE
     Indication: PRODUCT USED FOR UNKNOWN INDICATION
     Dosage: LESS THAN 30 TABLETS
     Route: 048
  3. GLIMEPIRIDE 4 MG [Suspect]
     Active Substance: GLIMEPIRIDE
     Indication: PRODUCT USED FOR UNKNOWN INDICATION
     Route: 048

REACTIONS (4)
  - Intentional overdose [Recovered/Resolved]
  - Blood insulin increased [Recovered/Resolved]
  - Drug level increased [Recovered/Resolved]
  - Hypoglycaemia [Recovered/Resolved]
